FAERS Safety Report 24996493 (Version 1)
Quarter: 2025Q1

REPORT INFORMATION
  Report Type: Spontaneous
  Country: TR (occurrence: TR)
  Receive Date: 20250221
  Receipt Date: 20250221
  Transmission Date: 20250409
  Serious: Yes (Hospitalization, Other)
  Sender: PHARMACEUTICAL ASSOC
  Company Number: TR-PAIPHARMA-2025-TR-000008

PATIENT
  Age: 17 Year
  Sex: Male

DRUGS (3)
  1. VALPROIC ACID [Suspect]
     Active Substance: VALPROIC ACID
     Indication: Epilepsy
     Dates: start: 2002, end: 2013
  2. PHENOBARBITAL [Concomitant]
     Active Substance: PHENOBARBITAL
  3. CARBAMAZEPINE [Concomitant]
     Active Substance: CARBAMAZEPINE

REACTIONS (2)
  - Glomerulonephropathy [Not Recovered/Not Resolved]
  - End stage renal disease [Not Recovered/Not Resolved]
